FAERS Safety Report 23007955 (Version 3)
Quarter: 2023Q4

REPORT INFORMATION
  Report Type: Report from Study
  Country: AT (occurrence: AT)
  Receive Date: 20230929
  Receipt Date: 20231109
  Transmission Date: 20240110
  Serious: Yes (Hospitalization)
  Sender: FDA-Public Use
  Company Number: AT-TEVA-2023-AT-2931899

PATIENT
  Age: 60 Year
  Sex: Male

DRUGS (17)
  1. LENALIDOMIDE [Suspect]
     Active Substance: LENALIDOMIDE
     Indication: Follicular lymphoma
     Dosage: 10 MILLIGRAM DAILY; 10 MG DAY 1 TO 21, EVERY 1 DAYS
     Route: 048
     Dates: start: 20221212, end: 20230705
  2. LENALIDOMIDE [Suspect]
     Active Substance: LENALIDOMIDE
     Dosage: 10 MILLIGRAM DAILY; 10 MG DAY 1 TO 21, EVERY 1 DAYS
     Route: 048
     Dates: start: 20230830
  3. EPCORITAMAB [Suspect]
     Active Substance: EPCORITAMAB
     Indication: Follicular lymphoma
     Dosage: 48 MILLIGRAM DAILY; 48 MG, C1 (STEP-UP), CYCLES 2 - 3 (WEEKLY), AND C4-12 (EVERY 4 WEEKS),EVERY 4 WE
     Route: 058
     Dates: start: 20221212, end: 20230626
  4. EPCORITAMAB [Suspect]
     Active Substance: EPCORITAMAB
     Dosage: 48 MILLIGRAM DAILY; 48 MG, C1 (STEP-UP), CYCLES 2 - 3 (WEEKLY), AND C4-12 (EVERY 4 WEEKS),EVERY 4 WE
     Route: 058
     Dates: start: 20230830
  5. RITUXIMAB [Suspect]
     Active Substance: RITUXIMAB
     Indication: Follicular lymphoma
     Dosage: 375 MG/M2, EVERY 4 WEEKS
     Route: 042
     Dates: start: 20221212, end: 20230419
  6. EXFORGE HCT [Concomitant]
     Active Substance: AMLODIPINE BESYLATE\HYDROCHLOROTHIAZIDE\VALSARTAN
     Indication: Hypertension
     Dosage: 1 DOSAGE FORMS DAILY; 1 DOSAGE FORM 10MG/160MG/12.5MG, EVERY 1 DAYS
     Dates: start: 20221213
  7. TROMALYT ASS [Concomitant]
     Indication: Cardiovascular event prophylaxis
     Dosage: DOSE: 100MG  EVERY 1 DAYS
     Dates: start: 20221213
  8. Paspertin [Concomitant]
     Indication: Nausea
     Dosage: 10 MG, 3/DAYS
     Dates: start: 20221213
  9. ZOFRAN [Concomitant]
     Active Substance: ONDANSETRON HYDROCHLORIDE
     Indication: Nausea
     Dosage: 8 MG, 2/DAYS
     Dates: start: 20221213
  10. POLYETHYLENE GLYCOL 3350\POTASSIUM CHLORIDE\SODIUM BICARBONATE\SODIUM [Concomitant]
     Active Substance: POLYETHYLENE GLYCOL 3350\POTASSIUM CHLORIDE\SODIUM BICARBONATE\SODIUM CHLORIDE
     Indication: Constipation
     Dosage: 1 DOSAGE FORM, 3/DAYS
     Dates: start: 20221213
  11. LOPERAMIDE HYDROCHLORIDE [Concomitant]
     Active Substance: LOPERAMIDE HYDROCHLORIDE
     Indication: Diarrhoea
     Dosage: 2 MG, 8/DAYS
     Dates: start: 20221213
  12. ACETAMINOPHEN [Concomitant]
     Active Substance: ACETAMINOPHEN
     Indication: Pain
     Dosage: 500 MG, AS NECESSARY
     Dates: start: 20221213
  13. BUTYLSCOPOLAMINE BROMIDE [Concomitant]
     Active Substance: BUTYLSCOPOLAMINE BROMIDE
     Indication: Pain prophylaxis
     Dosage: 10 MG, AS NECESSARY
     Dates: start: 20221213
  14. GLANDOMED [Concomitant]
     Indication: Infection prophylaxis
     Dosage: 4/DAYS
     Dates: start: 20221213
  15. DEXIBUPROFEN [Concomitant]
     Active Substance: DEXIBUPROFEN
     Indication: Pain prophylaxis
     Dosage: 400 MG, AS NECESSARY
     Dates: start: 20230111
  16. T100 [Concomitant]
     Indication: Decreased appetite
     Dosage: 1 DROPS, 3/DAYS
     Dates: start: 20230517
  17. PANTOPRAZOLE SODIUM [Concomitant]
     Active Substance: PANTOPRAZOLE SODIUM
     Indication: Therapeutic procedure
     Dosage: 40 MG, AS NECESSARY
     Dates: start: 20230410

REACTIONS (2)
  - COVID-19 [Recovered/Resolved]
  - Cough [Unknown]

NARRATIVE: CASE EVENT DATE: 20230725
